FAERS Safety Report 4716748-5 (Version None)
Quarter: 2005Q3

REPORT INFORMATION
  Report Type: 
  Country: None (occurrence: None)
  Receive Date: 20050719
  Receipt Date: 20050602
  Transmission Date: 20060218
  Serious: Yes (Hospitalization, Other)
  Sender: FDA-Public Use
  Company Number: PHFR2005GB02029

PATIENT
  Age: 79 Year
  Sex: Male

DRUGS (1)
  1. AREDIA [Suspect]
     Indication: HYPERCALCAEMIA
     Dosage: 90 MG, ONCE/SINGLE
     Dates: start: 20050520, end: 20050520

REACTIONS (13)
  - ANOREXIA [None]
  - BLOOD CREATININE INCREASED [None]
  - BLOOD UREA INCREASED [None]
  - DEPRESSION [None]
  - DERMATITIS BULLOUS [None]
  - OXYGEN SATURATION [None]
  - PAIN [None]
  - PYREXIA [None]
  - RASH [None]
  - RENAL IMPAIRMENT [None]
  - SKIN ULCER [None]
  - UNEVALUABLE EVENT [None]
  - UNRESPONSIVE TO VERBAL STIMULI [None]
